FAERS Safety Report 14360561 (Version 2)
Quarter: 2018Q4

REPORT INFORMATION
  Report Type: Spontaneous
  Country: ES (occurrence: ES)
  Receive Date: 20180106
  Receipt Date: 20181211
  Transmission Date: 20190204
  Serious: Yes (Other)
  Sender: FDA-Public Use
  Company Number: ES-AUROBINDO-AUR-APL-2018-001100

PATIENT
  Age: 82 Year
  Sex: Male

DRUGS (1)
  1. PARACETAMOL [Suspect]
     Active Substance: ACETAMINOPHEN
     Indication: UPPER RESPIRATORY TRACT INFECTION
     Dosage: UNK
     Route: 065

REACTIONS (10)
  - Neutrophilic dermatosis [Recovered/Resolved]
  - Malaise [Unknown]
  - Oedema [Unknown]
  - Neutrophilia [Unknown]
  - Skin plaque [Unknown]
  - Myalgia [Unknown]
  - Headache [Unknown]
  - Pyrexia [Unknown]
  - Rash pruritic [Unknown]
  - C-reactive protein increased [Unknown]
